FAERS Safety Report 9114240 (Version 1)
Quarter: 2013Q1

REPORT INFORMATION
  Report Type: Spontaneous
  Country: US (occurrence: US)
  Receive Date: 20130129
  Receipt Date: 20130129
  Transmission Date: 20140127
  Serious: No
  Sender: FDA-Public Use
  Company Number: US-ABBOTT-12P-163-0943704-00

PATIENT
  Sex: Female

DRUGS (3)
  1. HUMIRA 40 MG/ 0.8 ML PRE-FILLED SYRINGE [Suspect]
     Indication: RHEUMATOID ARTHRITIS
  2. METHOTREXATE [Concomitant]
     Indication: PRODUCT USED FOR UNKNOWN INDICATION
     Route: 048
  3. LEXAPRO [Concomitant]
     Indication: DEPRESSION

REACTIONS (4)
  - Abnormal sensation in eye [Not Recovered/Not Resolved]
  - Back pain [Unknown]
  - Headache [Unknown]
  - Influenza like illness [Unknown]
